FAERS Safety Report 12851664 (Version 1)
Quarter: 2016Q4

REPORT INFORMATION
  Report Type: Spontaneous
  Country: US (occurrence: US)
  Receive Date: 20161014
  Receipt Date: 20161014
  Transmission Date: 20170207
  Serious: Yes (Life-Threatening, Disabling)
  Sender: FDA-Public Use
  Company Number: None

PATIENT
  Age: 43 Year
  Sex: Female
  Weight: 60.3 kg

DRUGS (3)
  1. TYLENOL [Concomitant]
     Active Substance: ACETAMINOPHEN
  2. PREDNISONE 20 MG TABLETS [Suspect]
     Active Substance: PREDNISONE
     Indication: CONJUNCTIVITIS
     Dosage: ?          QUANTITY:2 TABLET(S);?
     Route: 048
     Dates: start: 20161007, end: 20161011
  3. PAMPRIM [Concomitant]

REACTIONS (3)
  - Tachycardia [None]
  - Oropharyngeal pain [None]
  - Insomnia [None]

NARRATIVE: CASE EVENT DATE: 20161013
